FAERS Safety Report 22300089 (Version 1)
Quarter: 2023Q2

REPORT INFORMATION
  Report Type: Spontaneous
  Country: US (occurrence: US)
  Receive Date: 20230509
  Receipt Date: 20230509
  Transmission Date: 20230721
  Serious: No
  Sender: FDA-Public Use
  Company Number: US-TEVA-2023-US-2880231

PATIENT
  Age: 59 Year
  Sex: Female
  Weight: 73.94 kg

DRUGS (5)
  1. COPAXONE [Suspect]
     Active Substance: GLATIRAMER ACETATE
     Indication: Multiple sclerosis
     Dosage: STRENGTH: 40 MG/ML, 40 MG THREE TIMES WEEKLY
     Route: 065
  2. MODAFINIL [Interacting]
     Active Substance: MODAFINIL
     Indication: Product used for unknown indication
     Route: 065
  3. TOPIRAMATE [Concomitant]
     Active Substance: TOPIRAMATE
     Indication: Product used for unknown indication
  4. GABAPENTIN [Concomitant]
     Active Substance: GABAPENTIN
     Indication: Product used for unknown indication
     Dosage: 600 MG
  5. GABAPENTIN [Concomitant]
     Active Substance: GABAPENTIN
     Dosage: 100 MG

REACTIONS (11)
  - Visual impairment [Unknown]
  - Dizziness [Unknown]
  - Swelling face [Unknown]
  - Illness [Unknown]
  - Feeling abnormal [Unknown]
  - Feeling hot [Unknown]
  - Erythema [Unknown]
  - Hypokinesia [Unknown]
  - Chest discomfort [Unknown]
  - Hyperhidrosis [Unknown]
  - Drug interaction [Unknown]

NARRATIVE: CASE EVENT DATE: 20230417
